FAERS Safety Report 6946107-6 (Version None)
Quarter: 2010Q3

REPORT INFORMATION
  Report Type: 
  Country: None (occurrence: None)
  Receive Date: 20100827
  Receipt Date: 20100818
  Transmission Date: 20110219
  Serious: Yes (Hospitalization)
  Sender: FDA-Public Use
  Company Number: SE-ABBOTT-10P-150-0664860-00

PATIENT
  Age: 81 Year
  Sex: Male

DRUGS (13)
  1. ERGENYL TABLETS [Suspect]
     Indication: EPILEPSY
     Route: 048
     Dates: end: 20091001
  2. ERGENYL TABLETS [Suspect]
     Dosage: 1.5G DAILY
     Route: 048
     Dates: start: 20091001, end: 20091103
  3. ATORVASTATIN [Concomitant]
     Indication: PRODUCT USED FOR UNKNOWN INDICATION
  4. APROVEL [Concomitant]
     Indication: PRODUCT USED FOR UNKNOWN INDICATION
  5. SALURES [Concomitant]
     Indication: PRODUCT USED FOR UNKNOWN INDICATION
  6. SUSCARD [Concomitant]
     Indication: PRODUCT USED FOR UNKNOWN INDICATION
  7. PLENDIL [Concomitant]
     Indication: PRODUCT USED FOR UNKNOWN INDICATION
  8. ENALAPRIL [Concomitant]
     Indication: PRODUCT USED FOR UNKNOWN INDICATION
  9. IMDUR [Concomitant]
     Indication: PRODUCT USED FOR UNKNOWN INDICATION
  10. ASPIRIN [Concomitant]
     Indication: PRODUCT USED FOR UNKNOWN INDICATION
  11. ZOLOFT [Concomitant]
     Indication: PRODUCT USED FOR UNKNOWN INDICATION
  12. PLAVIX [Concomitant]
     Indication: PRODUCT USED FOR UNKNOWN INDICATION
  13. SELOKEN ZOC [Concomitant]
     Indication: PRODUCT USED FOR UNKNOWN INDICATION

REACTIONS (4)
  - CONVULSION [None]
  - DIZZINESS [None]
  - MALAISE [None]
  - MYOCARDIAL INFARCTION [None]
